FAERS Safety Report 16352936 (Version 1)
Quarter: 2019Q2

REPORT INFORMATION
  Report Type: Spontaneous
  Country: US (occurrence: US)
  Receive Date: 20190524
  Receipt Date: 20190524
  Transmission Date: 20190711
  Serious: No
  Sender: FDA-Public Use
  Company Number: US-PFIZER INC-2019214092

PATIENT
  Age: 60 Year
  Sex: Male

DRUGS (1)
  1. PRISTIQ EXTENDED-RELEASE [Suspect]
     Active Substance: DESVENLAFAXINE SUCCINATE
     Dosage: 50 MG, UNK

REACTIONS (6)
  - Nightmare [Unknown]
  - Loss of libido [Unknown]
  - Emotional disorder [Unknown]
  - Product dose omission [Unknown]
  - Feeling abnormal [Unknown]
  - Fatigue [Unknown]
